FAERS Safety Report 22625176 (Version 2)
Quarter: 2023Q2

REPORT INFORMATION
  Report Type: Report from Study
  Country: GB (occurrence: GB)
  Receive Date: 20230621
  Receipt Date: 20230627
  Transmission Date: 20230722
  Serious: Yes (Hospitalization)
  Sender: FDA-Public Use
  Company Number: GB-CHUGAI-2023020249

PATIENT
  Sex: Male

DRUGS (6)
  1. CYTARABINE [Suspect]
     Active Substance: CYTARABINE
     Indication: Acute myeloid leukaemia
     Dosage: UNK
     Dates: start: 20150422, end: 20150425
  2. FLUDARABINE PHOSPHATE [Suspect]
     Active Substance: FLUDARABINE PHOSPHATE
     Dosage: UNK
     Dates: start: 20150422, end: 20150425
  3. IDARUBICIN HYDROCHLORIDE [Suspect]
     Active Substance: IDARUBICIN HYDROCHLORIDE
     Dosage: UNK
     Dates: start: 20150422, end: 20150425
  4. FLUCLOXACILLIN [Suspect]
     Active Substance: FLUCLOXACILLIN
     Dosage: UNK
     Route: 042
  5. LENOGRASTIM [Suspect]
     Active Substance: LENOGRASTIM
     Indication: Acute myeloid leukaemia
     Dosage: UNK
     Dates: start: 20150421, end: 20150426
  6. QUIZARTINIB [Suspect]
     Active Substance: QUIZARTINIB
     Dosage: UNK
     Dates: start: 20150428, end: 20150511

REACTIONS (7)
  - Pyrexia [Recovered/Resolved]
  - Dyspnoea [Recovered/Resolved]
  - Staphylococcal infection [Recovered/Resolved]
  - Psychotic disorder [Recovered/Resolved]
  - Agitation [Recovered/Resolved]
  - Skin lesion [Recovered/Resolved]
  - Pneumonia [Recovered/Resolved]

NARRATIVE: CASE EVENT DATE: 20150423
